FAERS Safety Report 14055854 (Version 1)
Quarter: 2017Q4

REPORT INFORMATION
  Report Type: Report from Study
  Country: None (occurrence: US)
  Receive Date: 20171006
  Receipt Date: 20171006
  Transmission Date: 20180321
  Serious: Yes (Other)
  Sender: FDA-Public Use
  Company Number: US-ABBVIE-17K-163-2119391-00

PATIENT
  Age: 44 Year
  Sex: Female
  Weight: 78.09 kg

DRUGS (4)
  1. EPIPEN [Concomitant]
     Active Substance: EPINEPHRINE
     Indication: HYPERSENSITIVITY
  2. HUMIRA [Suspect]
     Active Substance: ADALIMUMAB
     Route: 058
     Dates: start: 20170929
  3. HUMIRA [Suspect]
     Active Substance: ADALIMUMAB
     Indication: RHEUMATOID ARTHRITIS
     Route: 058
     Dates: start: 2012, end: 201709
  4. CITALOPRAM [Concomitant]
     Active Substance: CITALOPRAM HYDROBROMIDE
     Indication: ANXIETY

REACTIONS (10)
  - Vaginal haemorrhage [Recovered/Resolved]
  - Ovarian cyst [Not Recovered/Not Resolved]
  - Fluid retention [Not Recovered/Not Resolved]
  - Ovarian mass [Not Recovered/Not Resolved]
  - Fungal infection [Recovering/Resolving]
  - Post procedural complication [Unknown]
  - Urinary tract infection [Recovered/Resolved]
  - Bacterial vaginosis [Recovered/Resolved]
  - Smear cervix abnormal [Not Recovered/Not Resolved]
  - Weight increased [Not Recovered/Not Resolved]

NARRATIVE: CASE EVENT DATE: 2012
